FAERS Safety Report 5846163-2 (Version None)
Quarter: 2008Q3

REPORT INFORMATION
  Report Type: 
  Country: None (occurrence: None)
  Receive Date: 20080814
  Receipt Date: 20080806
  Transmission Date: 20090109
  Serious: Yes (Life-Threatening)
  Sender: FDA-Public Use
  Company Number: IT-PFIZER INC-2008066270

PATIENT
  Sex: Female

DRUGS (2)
  1. LOMEFLOXACIN HYDROCHLORIDE TABLET [Suspect]
     Dosage: DAILY DOSE:400MG
     Route: 048
     Dates: start: 20080803, end: 20080804
  2. CANDESARTAN [Concomitant]
     Dosage: DAILY DOSE:16MG

REACTIONS (2)
  - HYPERAEMIA [None]
  - PEAU D'ORANGE [None]
